FAERS Safety Report 4549938-5 (Version None)
Quarter: 2005Q1

REPORT INFORMATION
  Report Type: 
  Country: None (occurrence: None)
  Receive Date: 20050112
  Receipt Date: 20050103
  Transmission Date: 20050727
  Serious: Yes (Hospitalization)
  Sender: FDA-Public Use
  Company Number: PHRM2005FR00441

PATIENT
  Age: 74 Year
  Sex: Male

DRUGS (8)
  1. BISOPROLOL FUMARATE [Concomitant]
     Route: 048
  2. CORDIPATCH [Concomitant]
     Route: 062
  3. TAREG [Suspect]
     Dosage: 1 DF, QD
     Route: 048
     Dates: end: 20031226
  4. HEMIGOXINE NATIVELLE [Concomitant]
     Route: 048
  5. DEROXAT [Concomitant]
     Route: 048
  6. OGAST [Concomitant]
     Route: 048
  7. LASILIX [Concomitant]
     Route: 048
  8. COUMADIN [Concomitant]
     Route: 048

REACTIONS (1)
  - DERMATITIS EXFOLIATIVE [None]
